FAERS Safety Report 9464907 (Version 1)
Quarter: 2013Q3

REPORT INFORMATION
  Report Type: Spontaneous
  Country: BR (occurrence: BR)
  Receive Date: 20130819
  Receipt Date: 20130819
  Transmission Date: 20140515
  Serious: Yes (Hospitalization)
  Sender: FDA-Public Use
  Company Number: BR-BRISTOL-MYERS SQUIBB COMPANY-19186501

PATIENT
  Age: 70 Year
  Sex: Female

DRUGS (10)
  1. ORENCIA [Suspect]
     Indication: RHEUMATOID ARTHRITIS
  2. REMICADE [Suspect]
     Indication: RHEUMATOID ARTHRITIS
  3. ARAVA [Suspect]
     Indication: RHEUMATOID ARTHRITIS
  4. ENBREL [Suspect]
     Indication: RHEUMATOID ARTHRITIS
  5. LOSARTAN [Concomitant]
  6. AMLODIPINE [Concomitant]
  7. ATENOLOL [Concomitant]
  8. OMEPRAZOLE [Concomitant]
  9. ACTEMRA [Concomitant]
  10. NAPROXEN SODIUM [Concomitant]

REACTIONS (3)
  - Hypertension [Unknown]
  - Back pain [Unknown]
  - Drug ineffective [Unknown]
